FAERS Safety Report 26198199 (Version 1)
Quarter: 2025Q4

REPORT INFORMATION
  Report Type: Spontaneous
  Country: JP (occurrence: JP)
  Receive Date: 20251224
  Receipt Date: 20251224
  Transmission Date: 20260117
  Serious: Yes (Hospitalization, Other)
  Sender: PFIZER
  Company Number: JP-PFIZER INC-PV202500148361

PATIENT
  Age: 83 Year
  Sex: Male
  Weight: 49.5 kg

DRUGS (14)
  1. TOVIAZ [Suspect]
     Active Substance: FESOTERODINE FUMARATE
     Indication: Pollakiuria
     Dosage: 4 MG, 1X/DAY
     Route: 048
     Dates: start: 20251105, end: 20251111
  2. TOVIAZ [Suspect]
     Active Substance: FESOTERODINE FUMARATE
     Indication: Nocturia
  3. CARBIDOPA\LEVODOPA [Suspect]
     Active Substance: CARBIDOPA\LEVODOPA
     Indication: Parkinson^s disease
     Dosage: DAILY DOSE (1 TABLET FOR ONCE X 3 TIMES)
     Route: 048
  4. RIVAROXABAN [Concomitant]
     Active Substance: RIVAROXABAN
     Dosage: UNK
     Route: 048
     Dates: end: 20251111
  5. ESOMEPRAZOLE [Concomitant]
     Active Substance: ESOMEPRAZOLE
     Dosage: UNK
     Route: 048
     Dates: end: 20251111
  6. CARVEDILOL [Concomitant]
     Active Substance: CARVEDILOL
     Dosage: 0.625 MG
     Route: 048
     Dates: end: 20251111
  7. TAMBOCOR [Concomitant]
     Active Substance: FLECAINIDE ACETATE
     Dosage: UNK
     Route: 048
     Dates: end: 20251111
  8. AMLODIPINE [Concomitant]
     Active Substance: AMLODIPINE BESYLATE
     Dosage: UNK
     Route: 048
     Dates: end: 20251111
  9. SILODOSIN OD [Concomitant]
     Dosage: UNK
     Route: 048
     Dates: end: 20251111
  10. LULICONAZOLE [Concomitant]
     Active Substance: LULICONAZOLE
     Dosage: UNK
     Route: 062
  11. KETOPROFEN [Concomitant]
     Active Substance: KETOPROFEN
     Dosage: UNK
     Route: 062
  12. MOVICOL [Concomitant]
     Active Substance: POLYETHYLENE GLYCOL 3350\POTASSIUM CHLORIDE\SODIUM BICARBONATE\SODIUM CHLORIDE
     Dosage: UNK
     Route: 048
     Dates: start: 20251106, end: 20251111
  13. BIOFERMIN [BIFIDOBACTERIUM NOS] [Concomitant]
     Dosage: UNK
     Route: 048
     Dates: start: 20251106, end: 20251111
  14. CARBIDOPA\LEVODOPA [Concomitant]
     Active Substance: CARBIDOPA\LEVODOPA
     Indication: Parkinson^s disease
     Dosage: UNK

REACTIONS (7)
  - Rectal stenosis [Recovering/Resolving]
  - Large intestinal stenosis [Recovering/Resolving]
  - Volvulus [Recovering/Resolving]
  - Neoplasm malignant [Unknown]
  - Constipation [Recovering/Resolving]
  - Abdominal distension [Recovering/Resolving]
  - Abdominal pain [Unknown]

NARRATIVE: CASE EVENT DATE: 20251101
